FAERS Safety Report 7292046-3 (Version None)
Quarter: 2011Q1

REPORT INFORMATION
  Report Type: 
  Country: None (occurrence: None)
  Receive Date: 20110215
  Receipt Date: 20110202
  Transmission Date: 20110831
  Serious: Yes (Hospitalization)
  Sender: FDA-Public Use
  Company Number: GB-BIOGENIDEC-2011BI005026

PATIENT
  Age: 38 Year
  Sex: Female

DRUGS (5)
  1. CO-DYDRAMOL [Concomitant]
     Indication: PAIN PROPHYLAXIS
     Route: 048
  2. OMEPRAZOLE [Concomitant]
     Indication: DYSPEPSIA
     Route: 048
     Dates: start: 20100101
  3. BACLOFEN [Concomitant]
     Indication: MUSCLE SPASMS
     Route: 048
     Dates: start: 20100101
  4. TYSABRI [Suspect]
     Indication: MULTIPLE SCLEROSIS
     Route: 042
     Dates: start: 20100817, end: 20100817
  5. NITROFURANTOIN [Concomitant]
     Indication: PROPHYLAXIS
     Route: 048

REACTIONS (10)
  - CHEST DISCOMFORT [None]
  - HYPERSENSITIVITY [None]
  - FIBRIN D DIMER INCREASED [None]
  - HYPERHIDROSIS [None]
  - MUSCULAR WEAKNESS [None]
  - DYSPNOEA [None]
  - DIZZINESS [None]
  - FATIGUE [None]
  - COLD SWEAT [None]
  - CONDITION AGGRAVATED [None]
